FAERS Safety Report 18493132 (Version 11)
Quarter: 2022Q4

REPORT INFORMATION
  Report Type: Report from Study
  Country: US (occurrence: US)
  Receive Date: 20201111
  Receipt Date: 20221212
  Transmission Date: 20230113
  Serious: Yes (Other)
  Sender: FDA-Public Use
  Company Number: US-SHIRE-US202030874

PATIENT
  Sex: Female

DRUGS (2)
  1. HUMAN IMMUNOGLOBULIN G\HYALURONIDASE RECOMBINANT HUMAN [Suspect]
     Active Substance: HUMAN IMMUNOGLOBULIN G\HYALURONIDASE RECOMBINANT HUMAN
     Indication: Immunodeficiency common variable
     Dosage: UNK
     Route: 065
  2. METHOTREXATE [Suspect]
     Active Substance: METHOTREXATE
     Indication: Product used for unknown indication
     Route: 065

REACTIONS (27)
  - Rheumatoid arthritis [Unknown]
  - Bursitis [Unknown]
  - Tendonitis [Unknown]
  - Thirst [Unknown]
  - Insomnia [Unknown]
  - Herpes zoster [Unknown]
  - Tendon rupture [Unknown]
  - Abdominal distension [Unknown]
  - Malaise [Unknown]
  - Muscle injury [Unknown]
  - Feeling abnormal [Unknown]
  - Peripheral swelling [Unknown]
  - Ocular hyperaemia [Unknown]
  - Skin exfoliation [Unknown]
  - Arthritis [Unknown]
  - Connective tissue disorder [Unknown]
  - Irritable bowel syndrome [Unknown]
  - Contusion [Unknown]
  - Lymphadenopathy [Unknown]
  - Stress [Unknown]
  - Skin disorder [Unknown]
  - Atrophy [Unknown]
  - Fatigue [Unknown]
  - Device malfunction [Unknown]
  - Candida infection [Unknown]
  - Rash macular [Unknown]
  - Depression [Unknown]
